FAERS Safety Report 25924647 (Version 2)
Quarter: 2025Q4

REPORT INFORMATION
  Report Type: Spontaneous
  Country: JP (occurrence: JP)
  Receive Date: 20251015
  Receipt Date: 20251027
  Transmission Date: 20260118
  Serious: Yes (Hospitalization)
  Sender: MERCK SHARP & DOHME LLC
  Company Number: JP-009507513-2338392

PATIENT
  Age: 7 Decade
  Sex: Female

DRUGS (6)
  1. SOTATERCEPT [Suspect]
     Active Substance: SOTATERCEPT
     Indication: Pulmonary arterial hypertension
     Route: 058
     Dates: start: 2025, end: 2025
  2. SOTATERCEPT [Suspect]
     Active Substance: SOTATERCEPT
     Indication: Pulmonary arterial hypertension
     Dosage: FIRST TIME ADMINISTRATION
     Route: 058
     Dates: start: 20250826, end: 20250826
  3. SOTATERCEPT [Suspect]
     Active Substance: SOTATERCEPT
     Indication: Pulmonary arterial hypertension
     Route: 058
     Dates: start: 20251014
  4. SELEXIPAG [Concomitant]
     Active Substance: SELEXIPAG
     Dosage: DISCONTINUED DUE TO THE INTRODUCTION OF AIRWIN
     Route: 048
     Dates: end: 2025
  5. ADEMPAS [Concomitant]
     Active Substance: RIOCIGUAT
     Dosage: ADMINISTRATION CONTINUED
     Route: 048
  6. MACITENTAN [Concomitant]
     Active Substance: MACITENTAN
     Dosage: ADMINISTRATION CONTINUED
     Route: 048

REACTIONS (2)
  - White blood cell count increased [Recovered/Resolved]
  - Nasopharyngitis [Recovered/Resolved]

NARRATIVE: CASE EVENT DATE: 20250101
